FAERS Safety Report 5486606-X (Version None)
Quarter: 2007Q3

REPORT INFORMATION
  Report Type: 
  Country: None (occurrence: None)
  Receive Date: 20070925
  Receipt Date: 20070607
  Transmission Date: 20080115
  Serious: No
  Sender: FDA-Public Use
  Company Number: 2007US000566

PATIENT
  Age: 70 Year
  Sex: Female

DRUGS (10)
  1. VESICARE [Suspect]
     Indication: HYPERTONIC BLADDER
     Dosage: 10 MG, UID/QD
     Dates: start: 20070201
  2. COUMADIN [Concomitant]
  3. OMEPRAZOLE [Concomitant]
  4. ALEVE [Concomitant]
  5. LOPRESSOR [Concomitant]
  6. ACCUPRIL [Concomitant]
  7. INSULIN (INSULIN HUMAN) [Concomitant]
  8. LEVOTHYROXINE SODIUM [Concomitant]
  9. ASPIRIN [Concomitant]
  10. DIGOXIN [Concomitant]

REACTIONS (5)
  - COAGULATION TIME PROLONGED [None]
  - CONSTIPATION [None]
  - DRY MOUTH [None]
  - ROTATOR CUFF SYNDROME [None]
  - VISION BLURRED [None]
